FAERS Safety Report 9478381 (Version 6)
Quarter: 2014Q2

REPORT INFORMATION
  Report Type: Report from Study
  Country: US (occurrence: US)
  Receive Date: 20130827
  Receipt Date: 20140423
  Transmission Date: 20141212
  Serious: Yes (Death, Hospitalization, Other)
  Sender: FDA-Public Use
  Company Number: US-ASTELLAS-2013US008958

PATIENT
  Age: 66 Year
  Sex: Male

DRUGS (20)
  1. ERLOTINIB [Suspect]
     Indication: NON-SMALL CELL LUNG CANCER
     Route: 048
     Dates: start: 20130625, end: 20130810
  2. ERLOTINIB [Suspect]
     Route: 048
     Dates: start: 20130604, end: 20130614
  3. CABOZANTINIB [Suspect]
     Indication: NON-SMALL CELL LUNG CANCER
     Route: 048
     Dates: start: 20130625, end: 20130810
  4. CABOZANTINIB [Suspect]
     Route: 048
     Dates: start: 20130604, end: 20130614
  5. METOPROLOL [Suspect]
     Indication: PRODUCT USED FOR UNKNOWN INDICATION
     Route: 048
  6. CORTEF                             /00028601/ [Concomitant]
     Indication: PRODUCT USED FOR UNKNOWN INDICATION
     Route: 048
  7. SYNTHROID [Concomitant]
     Indication: PRODUCT USED FOR UNKNOWN INDICATION
     Dosage: 0.1 MG, ONCE DAILY
     Route: 065
  8. MAGNESIUM OXIDE [Concomitant]
     Indication: PRODUCT USED FOR UNKNOWN INDICATION
     Route: 065
  9. MULTIVITAMINS WITH MINERALS        /90003801/ [Concomitant]
     Indication: PRODUCT USED FOR UNKNOWN INDICATION
     Route: 065
  10. ZOFRAN                             /00955301/ [Concomitant]
     Indication: NAUSEA
     Route: 065
     Dates: start: 20121228
  11. PANTOPRAZOLE [Concomitant]
     Indication: PRODUCT USED FOR UNKNOWN INDICATION
     Route: 048
  12. VITAMIN C                          /00008001/ [Concomitant]
     Indication: PRODUCT USED FOR UNKNOWN INDICATION
     Route: 048
     Dates: start: 20100505
  13. ASPIRIN [Concomitant]
     Indication: PRODUCT USED FOR UNKNOWN INDICATION
     Route: 065
  14. TUMS 500 CALCIUM [Concomitant]
     Indication: PRODUCT USED FOR UNKNOWN INDICATION
     Route: 048
  15. MONODOX                            /00055701/ [Concomitant]
     Indication: PRODUCT USED FOR UNKNOWN INDICATION
     Route: 048
     Dates: start: 20130429
  16. CIALIS [Concomitant]
     Indication: PRODUCT USED FOR UNKNOWN INDICATION
     Route: 048
  17. FLORINEF [Concomitant]
     Indication: PRODUCT USED FOR UNKNOWN INDICATION
     Dosage: 0.2 MG, ONCE DAILY
     Route: 048
  18. CENTRUM                            /02217401/ [Concomitant]
     Indication: PRODUCT USED FOR UNKNOWN INDICATION
     Route: 048
  19. CORTISONE                          /00028601/ [Concomitant]
     Indication: PRODUCT USED FOR UNKNOWN INDICATION
     Route: 061
  20. IMODIUM [Concomitant]
     Indication: DIARRHOEA
     Route: 048
     Dates: start: 20130603, end: 20130724

REACTIONS (13)
  - Death [Fatal]
  - Confusional state [Recovering/Resolving]
  - Electrolyte imbalance [Unknown]
  - Cardiac failure congestive [Unknown]
  - Hypokalaemia [Recovered/Resolved]
  - Lymphocyte count decreased [Recovered/Resolved]
  - Bandaemia [Unknown]
  - Hypophagia [Recovering/Resolving]
  - Pleural effusion [Unknown]
  - Hypotension [Unknown]
  - Muscular weakness [Unknown]
  - Nausea [Unknown]
  - Vomiting [Unknown]
